FAERS Safety Report 25239651 (Version 1)
Quarter: 2025Q2

REPORT INFORMATION
  Report Type: Spontaneous
  Country: DE (occurrence: DE)
  Receive Date: 20250425
  Receipt Date: 20250425
  Transmission Date: 20250716
  Serious: Yes (Hospitalization, Other)
  Sender: B BRAUN
  Company Number: DE-B.Braun Medical Inc.-2175544

PATIENT
  Age: 89 Year
  Sex: Female

DRUGS (18)
  1. ACETAMINOPHEN [Suspect]
     Active Substance: ACETAMINOPHEN
     Indication: Pain
  2. DIPYRONE [Suspect]
     Active Substance: DIPYRONE
  3. MAGNESIUM [Concomitant]
     Active Substance: MAGNESIUM
  4. FOSFOMYCIN TROMETHAMINE [Concomitant]
     Active Substance: FOSFOMYCIN TROMETHAMINE
  5. HALOPERIDOL [Concomitant]
     Active Substance: HALOPERIDOL
  6. FENTANYL [Concomitant]
     Active Substance: FENTANYL
  7. DIAZEPAM [Concomitant]
     Active Substance: DIAZEPAM
  8. DAFALGAN [Concomitant]
     Active Substance: ACETAMINOPHEN
  9. CEFEPIME [Concomitant]
     Active Substance: CEFEPIME HYDROCHLORIDE
  10. MEPERIDINE [Interacting]
     Active Substance: MEPERIDINE
  11. OXYCONTIN [Interacting]
     Active Substance: OXYCODONE HYDROCHLORIDE
  12. UNSPECIFIED INGREDIENT [Interacting]
     Active Substance: UNSPECIFIED INGREDIENT
  13. MIRTAZAPINE [Interacting]
     Active Substance: MIRTAZAPINE
  14. CITALOPRAM [Interacting]
     Active Substance: CITALOPRAM
  15. MEPERIDINE HYDROCHLORIDE [Suspect]
     Active Substance: MEPERIDINE HYDROCHLORIDE
  16. QUETIAPINE [Suspect]
     Active Substance: QUETIAPINE
  17. UNSPECIFIED INGREDIENT [Suspect]
     Active Substance: UNSPECIFIED INGREDIENT
  18. LORAZEPAM [Suspect]
     Active Substance: LORAZEPAM

REACTIONS (9)
  - Diarrhoea [Recovering/Resolving]
  - Pelvic fracture [Recovering/Resolving]
  - Fall [Recovered/Resolved]
  - Serotonin syndrome [Recovered/Resolved]
  - Drug interaction [Recovered/Resolved]
  - Hypertension [Recovering/Resolving]
  - Respiratory alkalosis [Recovering/Resolving]
  - Delirium [Recovering/Resolving]
  - Hallucination [Recovering/Resolving]
